FAERS Safety Report 7428495-X (Version None)
Quarter: 2011Q2

REPORT INFORMATION
  Report Type: 
  Country: None (occurrence: None)
  Receive Date: 20110413
  Receipt Date: 20110404
  Transmission Date: 20111010
  Serious: Yes (Hospitalization)
  Sender: FDA-Public Use
  Company Number: FR-20110071

PATIENT
  Age: 63 Year
  Sex: Male

DRUGS (16)
  1. BRICANYL (TERBUTALINE) (TERBUTALINE) [Concomitant]
  2. DOXORUBICINE (DOXORUBICINE) [Suspect]
     Indication: THERAPEUTIC EMBOLISATION
     Dosage: INTRAVENOUS (NOT OTHERWISE SPECIFIED) ; INTRAVENOUS (NOT OTHERWISE SPECIFIED)
     Route: 042
     Dates: start: 20110106, end: 20110106
  3. DOXORUBICINE (DOXORUBICINE) [Suspect]
     Indication: THERAPEUTIC EMBOLISATION
     Dosage: INTRAVENOUS (NOT OTHERWISE SPECIFIED) ; INTRAVENOUS (NOT OTHERWISE SPECIFIED)
     Route: 042
     Dates: start: 20100825, end: 20100825
  4. INEXIUM (ESOMEPRAZOLE) (ESOMEPRAZOLE) [Concomitant]
  5. LIPIODOL (ETHIODIZED OIL) [Suspect]
     Indication: THERAPEUTIC EMBOLISATION
     Dosage: INTRAVENOUS (NOT OTHERWISE SPECIFIED ; INTRAVENOUS (NOT OTHEWISE SPECIFIED)
     Route: 042
     Dates: start: 20100825, end: 20100825
  6. LIPIODOL (ETHIODIZED OIL) [Suspect]
     Indication: THERAPEUTIC EMBOLISATION
     Dosage: INTRAVENOUS (NOT OTHERWISE SPECIFIED ; INTRAVENOUS (NOT OTHEWISE SPECIFIED)
     Route: 042
     Dates: start: 20110106, end: 20110106
  7. KENZEN (CANDESARTAN) (CANDESARTAN) [Concomitant]
  8. SOLUPRED (PREDNISOLONE) (PREDNISOLONE) [Concomitant]
  9. CALCIPARINE (CALCIUM HEPARINE) (CALCIUM HEPARINE) [Concomitant]
  10. LASILIX (FUROSEMIDE) (FUROSEMIDE) [Concomitant]
  11. ATROVENT (IPATROPIUM BROMIDE) (IPATROPIUM BROMIDE) [Concomitant]
  12. HEMIGOXINE (DIGOXINE) (DIGOXINE) [Concomitant]
  13. LAMICTAL [Concomitant]
  14. CORDARONE (AMIODARONE) (AMIODARONE) [Concomitant]
  15. SERETIDE (FLUTICASONE, SALMETEROL) (FLUTICASONE, SALMETEROL) [Concomitant]
  16. PREVISCAN (FLUINDONE) (FLUINDONE) [Concomitant]

REACTIONS (7)
  - ACUTE RESPIRATORY FAILURE [None]
  - OXYGEN SATURATION DECREASED [None]
  - DYSPNOEA [None]
  - OFF LABEL USE [None]
  - HYPERTHERMIA [None]
  - EJECTION FRACTION DECREASED [None]
  - RESPIRATORY ACIDOSIS [None]
